FAERS Safety Report 9857136 (Version 2)
Quarter: 2014Q1

REPORT INFORMATION
  Report Type: Report from Study
  Country: PT (occurrence: PT)
  Receive Date: 20140130
  Receipt Date: 20140130
  Transmission Date: 20141002
  Serious: Yes (Other)
  Sender: FDA-Public Use
  Company Number: PT-GILEAD-2012-0061282

PATIENT
  Age: 29 Year
  Sex: 0

DRUGS (1)
  1. ADEFOVIR DIPIVOXIL [Suspect]
     Indication: HEPATITIS B
     Route: 065

REACTIONS (1)
  - Virologic failure [Unknown]
